FAERS Safety Report 11645813 (Version 1)
Quarter: 2015Q4

REPORT INFORMATION
  Report Type: Spontaneous
  Country: US (occurrence: US)
  Receive Date: 20151020
  Receipt Date: 20151020
  Transmission Date: 20160304
  Serious: No
  Sender: FDA-Public Use
  Company Number: US-AMGEN-USASP2015096395

PATIENT
  Age: 59 Year
  Sex: Male

DRUGS (3)
  1. POTASSIUM [Concomitant]
     Active Substance: POTASSIUM
     Dosage: UNK UNK, QD
  2. CORLANOR [Suspect]
     Active Substance: IVABRADINE HYDROCHLORIDE
     Indication: EJECTION FRACTION DECREASED
     Dosage: 5 MG, BID
     Route: 065
     Dates: start: 20150819
  3. ABILIFY [Concomitant]
     Active Substance: ARIPIPRAZOLE
     Dosage: UNK
     Dates: start: 201508

REACTIONS (7)
  - Dyspnoea [Unknown]
  - Elevated mood [Unknown]
  - Chronic obstructive pulmonary disease [Unknown]
  - Gastritis [Recovered/Resolved]
  - Skin discolouration [Unknown]
  - Productive cough [Unknown]
  - Insomnia [Recovered/Resolved]

NARRATIVE: CASE EVENT DATE: 2015
